FAERS Safety Report 13359329 (Version 2)
Quarter: 2017Q2

REPORT INFORMATION
  Report Type: Spontaneous
  Country: US (occurrence: US)
  Receive Date: 20170322
  Receipt Date: 20170407
  Transmission Date: 20170830
  Serious: Yes (Other)
  Sender: FDA-Public Use
  Company Number: US-PFIZER INC-2017117636

PATIENT
  Age: 37 Year
  Sex: Female

DRUGS (1)
  1. DEPO-PROVERA [Suspect]
     Active Substance: MEDROXYPROGESTERONE ACETATE
     Indication: CONTRACEPTION
     Dosage: UNK

REACTIONS (11)
  - Bone disorder [Unknown]
  - Tinnitus [Unknown]
  - Fractured coccyx [Not Recovered/Not Resolved]
  - Tooth disorder [Unknown]
  - Headache [Unknown]
  - Osteoporosis [Unknown]
  - Tooth fracture [Not Recovered/Not Resolved]
  - Anxiety [Unknown]
  - Emotional disorder [Unknown]
  - Libido decreased [Unknown]
  - Blepharospasm [Unknown]

NARRATIVE: CASE EVENT DATE: 201507
